FAERS Safety Report 17518511 (Version 3)
Quarter: 2022Q2

REPORT INFORMATION
  Report Type: Spontaneous
  Country: RU (occurrence: RU)
  Receive Date: 20200310
  Receipt Date: 20220525
  Transmission Date: 20220721
  Serious: Yes (Other)
  Sender: FDA-Public Use
  Company Number: RU-002147023-NVSC2020RU061694

PATIENT
  Age: 32 Year
  Sex: Female

DRUGS (1)
  1. XOLAIR [Suspect]
     Active Substance: OMALIZUMAB
     Indication: Product used for unknown indication
     Route: 065

REACTIONS (4)
  - Abortion missed [Unknown]
  - Angioedema [Recovered/Resolved]
  - Condition aggravated [Unknown]
  - Maternal exposure during pregnancy [Unknown]
